FAERS Safety Report 18045879 (Version 2)
Quarter: 2020Q4

REPORT INFORMATION
  Report Type: Report from Study
  Country: None (occurrence: IN)
  Receive Date: 20200721
  Receipt Date: 20201006
  Transmission Date: 20210113
  Serious: Yes (Other)
  Sender: FDA-Public Use
  Company Number: IN-ABBVIE-20K-078-3490448-00

PATIENT
  Age: 68 Year
  Sex: Female

DRUGS (3)
  1. ELTOCIN                            /00020901/ [Concomitant]
     Indication: BACK PAIN
     Dates: start: 202006
  2. BIO-D3 PLUS [Concomitant]
     Indication: PRODUCT USED FOR UNKNOWN INDICATION
     Dates: start: 202006
  3. IBRUTINIB [Suspect]
     Active Substance: IBRUTINIB
     Indication: CHRONIC LYMPHOCYTIC LEUKAEMIA
     Route: 048
     Dates: start: 20200321, end: 20200710

REACTIONS (2)
  - Bone marrow infiltration [Unknown]
  - Spinal compression fracture [Unknown]
